FAERS Safety Report 8786275 (Version 2)
Quarter: 2012Q4

REPORT INFORMATION
  Report Type: 
  Country: ES (occurrence: ES)
  Receive Date: 20120914
  Receipt Date: 20120921
  Transmission Date: 20130627
  Serious: Yes (Hospitalization)
  Sender: FDA-Public Use
  Company Number: ES-PFIZER INC-2012216769

PATIENT
  Age: 74 Year
  Sex: Male
  Weight: 70 kg

DRUGS (11)
  1. TEMSIROLIMUS [Suspect]
     Dosage: 15 mg, cyclic (21 days)
     Route: 042
     Dates: start: 20120712
  2. DOCETAXEL [Suspect]
     Dosage: 94 mg, every 3 weeks
     Route: 042
     Dates: start: 20120711
  3. ENALAPRIL [Concomitant]
     Indication: HYPERTENSION
     Dosage: UNK
     Route: 048
     Dates: start: 201109
  4. FUROSEMIDE [Concomitant]
     Indication: CARDIAC DISORDER
     Dosage: UNK
     Route: 048
     Dates: start: 201108
  5. DIGOXINE [Concomitant]
     Indication: CARDIAC DISORDER
     Dosage: UNK
     Route: 048
     Dates: start: 201108
  6. CALCIUM D3 ^STADA^ [Concomitant]
     Indication: VITAMIN D DEFICIENCY
     Dosage: UNK
     Route: 048
     Dates: start: 2011
  7. IBANDRONIC ACID [Concomitant]
     Indication: POLYARTHRITIS
     Dosage: UNK
     Route: 048
     Dates: start: 2011
  8. ETORICOXIB [Concomitant]
     Indication: POLYARTHRITIS
     Dosage: UNK
     Route: 048
     Dates: start: 201108
  9. BEMIPARIN SODIUM [Concomitant]
     Indication: CARDIAC DISORDER
     Dosage: UNK
     Route: 058
     Dates: start: 20120316
  10. PREDNISONE [Concomitant]
     Indication: PROSTATE CANCER
     Dosage: UNK
     Route: 048
     Dates: start: 20120223
  11. CIPROFLOXACIN [Concomitant]
     Indication: INFECTION PROPHYLAXIS
     Dosage: UNK
     Route: 048
     Dates: start: 20120830, end: 20120830

REACTIONS (1)
  - Febrile neutropenia [Recovered/Resolved]
